FAERS Safety Report 7359075-2 (Version None)
Quarter: 2011Q1

REPORT INFORMATION
  Report Type: 
  Country: None (occurrence: None)
  Receive Date: 20110317
  Receipt Date: 20110224
  Transmission Date: 20110831
  Serious: Yes (Hospitalization, Other)
  Sender: FDA-Public Use
  Company Number: US-BAYER-201039326NA

PATIENT
  Sex: Female

DRUGS (3)
  1. CHANTIX [Concomitant]
     Indication: EX-TOBACCO USER
  2. YAZ [Suspect]
     Indication: MOOD SWINGS
     Route: 048
     Dates: start: 20070417, end: 20070616
  3. NEXIUM [Concomitant]
     Indication: GASTROOESOPHAGEAL REFLUX DISEASE

REACTIONS (1)
  - PULMONARY EMBOLISM [None]
